FAERS Safety Report 23650222 (Version 1)
Quarter: 2024Q1

REPORT INFORMATION
  Report Type: Spontaneous
  Country: IT (occurrence: IT)
  Receive Date: 20240319
  Receipt Date: 20240319
  Transmission Date: 20240409
  Serious: Yes (Hospitalization, Other)
  Sender: FDA-Public Use
  Company Number: IT-MYLANLABS-2024M1023598

PATIENT
  Age: 49 Year
  Sex: Female

DRUGS (1)
  1. CREON [Suspect]
     Active Substance: PANCRELIPASE AMYLASE\PANCRELIPASE LIPASE\PANCRELIPASE PROTEASE
     Indication: Product used for unknown indication
     Dosage: 10000 U.PH.EUR. CAPSULE RIGIDE A RILASCIO MODIFICATO
     Route: 048

REACTIONS (3)
  - Diabetes mellitus [Unknown]
  - Product availability issue [Unknown]
  - Malnutrition [Unknown]
